FAERS Safety Report 10046275 (Version 1)
Quarter: 2014Q1

REPORT INFORMATION
  Report Type: Spontaneous
  Country: US (occurrence: US)
  Receive Date: 20140331
  Receipt Date: 20140331
  Transmission Date: 20141002
  Serious: No
  Sender: FDA-Public Use
  Company Number: US-BIOGENIDEC-2014BI026731

PATIENT
  Age: 45 Year
  Sex: Female

DRUGS (16)
  1. TECFIDERA [Suspect]
     Indication: MULTIPLE SCLEROSIS
     Route: 048
  2. ADDERALL [Concomitant]
  3. BACLOFEN [Concomitant]
  4. CALCIUM + D [Concomitant]
  5. CLONAZEPAM [Concomitant]
  6. ESTRADIOL [Concomitant]
  7. IBUPROFEN [Concomitant]
  8. LEVETIRACETAM [Concomitant]
  9. LOVASTATIN [Concomitant]
  10. OMEPRAZOLE [Concomitant]
  11. PROLIA [Concomitant]
  12. ROCEPHIN [Concomitant]
  13. SERTRALINE HCL [Concomitant]
  14. TIZANIDINE HCL [Concomitant]
  15. TRIAZOLAM [Concomitant]
  16. VITAMIN D [Concomitant]

REACTIONS (3)
  - Urinary tract infection [Recovered/Resolved]
  - Musculoskeletal stiffness [Not Recovered/Not Resolved]
  - Mobility decreased [Not Recovered/Not Resolved]
